FAERS Safety Report 6096500-1 (Version None)
Quarter: 2009Q1

REPORT INFORMATION
  Report Type: 
  Country: None (occurrence: None)
  Receive Date: 20090227
  Receipt Date: 20090216
  Transmission Date: 20090719
  Serious: Yes (Hospitalization, Other)
  Sender: FDA-Public Use
  Company Number: US-ELI_LILLY_AND_COMPANY-US200812004795

PATIENT
  Sex: Female
  Weight: 47.619 kg

DRUGS (6)
  1. FORTEO [Suspect]
     Indication: OSTEOPOROSIS
  2. FOLIC ACID [Concomitant]
  3. ASPIRIN [Concomitant]
  4. ATENOLOL [Concomitant]
  5. KLONOPIN [Concomitant]
  6. OS-CAL [Concomitant]

REACTIONS (2)
  - FALL [None]
  - FEMUR FRACTURE [None]
